FAERS Safety Report 5878883-8 (Version None)
Quarter: 2008Q3

REPORT INFORMATION
  Report Type: 
  Country: None (occurrence: None)
  Receive Date: 20080912
  Receipt Date: 20080904
  Transmission Date: 20090109
  Serious: Yes (Other)
  Sender: FDA-Public Use
  Company Number: CA-BAYER-200810595NA

PATIENT
  Sex: Female

DRUGS (1)
  1. MIRENA [Suspect]
     Route: 015
     Dates: start: 20050101, end: 20071201

REACTIONS (5)
  - BACK PAIN [None]
  - FATIGUE [None]
  - LOWER EXTREMITY MASS [None]
  - MYALGIA [None]
  - THROMBOSIS [None]
